FAERS Safety Report 9819947 (Version 1)
Quarter: 2013Q1

REPORT INFORMATION
  Report Type: Spontaneous
  Country: US (occurrence: None)
  Receive Date: 20130107
  Receipt Date: 20130107
  Transmission Date: 20140127
  Serious: No
  Sender: FDA-Public Use
  Company Number: PHEH2012US019410

PATIENT
  Age: 52 Year
  Sex: Female
  Weight: 70 kg

DRUGS (6)
  1. GILENYA (FTY) CAPSULE, 0.5MG [Suspect]
     Indication: MULTIPLE SCLEROSIS
     Route: 048
     Dates: start: 20110712
  2. SOMA CMPD WITH CODEIN (ACETYLSALICYLIC ACID, CARISOPRODOL, CODEINE PHOSPHATE) [Concomitant]
  3. ALPRAZOLAM [Concomitant]
  4. TRAMADOL [Concomitant]
  5. LEVOTHROID (LEVOTHYROXINE SODIUM) [Concomitant]
  6. NUVIGIL (ARMODAFINIL) [Concomitant]

REACTIONS (3)
  - Abdominal distension [None]
  - Decreased appetite [None]
  - Weight decreased [None]
